FAERS Safety Report 4706797-5 (Version None)
Quarter: 2005Q3

REPORT INFORMATION
  Report Type: 
  Country: None (occurrence: None)
  Receive Date: 20050705
  Receipt Date: 20050620
  Transmission Date: 20060218
  Serious: Yes (Death)
  Sender: FDA-Public Use
  Company Number: 2005-DE-02345GD

PATIENT
  Sex: 0

DRUGS (5)
  1. OXAZEPAM [Suspect]
  2. TRAZODONE HCL [Suspect]
  3. DIAZEPAM [Suspect]
  4. ALPRAZOLAM [Suspect]
  5. OXYCODONE HCL [Suspect]

REACTIONS (2)
  - DRUG ABUSER [None]
  - DRUG TOXICITY [None]
